FAERS Safety Report 11050487 (Version 1)
Quarter: 2015Q2

REPORT INFORMATION
  Report Type: Spontaneous
  Country: TR (occurrence: TR)
  Receive Date: 20150421
  Receipt Date: 20150421
  Transmission Date: 20150821
  Serious: Yes (Death)
  Sender: FDA-Public Use
  Company Number: TR-BAYER-2015-135438

PATIENT
  Age: 59 Year
  Sex: Female

DRUGS (4)
  1. PENICILLIN G [Suspect]
     Active Substance: PENICILLIN G
     Indication: MENINGITIS BACTERIAL
  2. CIPROFLOXACIN. [Suspect]
     Active Substance: CIPROFLOXACIN
     Indication: MENINGITIS BACTERIAL
  3. PENICILLIN G [Suspect]
     Active Substance: PENICILLIN G
     Indication: ANTHRAX
     Dosage: 24 MU/DAY
     Route: 042
  4. CIPROFLOXACIN. [Suspect]
     Active Substance: CIPROFLOXACIN
     Indication: ANTHRAX
     Dosage: 400 MG, UNK
     Route: 042

REACTIONS (3)
  - Off label use [None]
  - Respiratory failure [Fatal]
  - Drug ineffective for unapproved indication [None]
